FAERS Safety Report 21797192 (Version 1)
Quarter: 2022Q4

REPORT INFORMATION
  Report Type: Spontaneous
  Country: US (occurrence: None)
  Receive Date: 20221230
  Receipt Date: 20221230
  Transmission Date: 20230113
  Serious: No
  Sender: FDA-Public Use
  Company Number: 2022A409739

PATIENT
  Sex: Female
  Weight: 62.6 kg

DRUGS (1)
  1. PULMICORT FLEXHALER [Suspect]
     Active Substance: BUDESONIDE
     Indication: Congenital subglottic stenosis
     Dosage: 90 MCG TWO PUFFS TWO TIMES A DAY
     Route: 055
     Dates: start: 20221212

REACTIONS (4)
  - Cough [Unknown]
  - Incorrect dose administered [Unknown]
  - Drug effect less than expected [Unknown]
  - Device malfunction [Unknown]
